FAERS Safety Report 14343673 (Version 2)
Quarter: 2018Q2

REPORT INFORMATION
  Report Type: Spontaneous
  Country: JP (occurrence: JP)
  Receive Date: 20180102
  Receipt Date: 20180405
  Transmission Date: 20180711
  Serious: Yes (Other)
  Sender: FDA-Public Use
  Company Number: JP-BAYER-2017-247772

PATIENT
  Age: 37 Year
  Sex: Female

DRUGS (2)
  1. PLACENTA [Concomitant]
     Active Substance: SUS SCROFA PLACENTA
  2. YAZ [Suspect]
     Active Substance: DROSPIRENONE\ETHINYL ESTRADIOL
     Indication: DYSMENORRHOEA
     Dosage: UNK, QD
     Route: 048
     Dates: start: 20170821

REACTIONS (1)
  - Retinal neovascularisation [Recovered/Resolved]
